FAERS Safety Report 6826129-6 (Version None)
Quarter: 2010Q2

REPORT INFORMATION
  Report Type: 
  Country: None (occurrence: None)
  Receive Date: 20100520
  Receipt Date: 20090528
  Transmission Date: 20101027
  Serious: Yes (Other)
  Sender: FDA-Public Use
  Company Number: 2009220752

PATIENT
  Age: 67 Year
  Weight: 68 kg

DRUGS (6)
  1. PROVERA [Suspect]
     Indication: HORMONE REPLACEMENT THERAPY
     Dates: start: 19870101, end: 19940101
  2. PREMARIN [Suspect]
     Indication: HORMONE REPLACEMENT THERAPY
     Dates: start: 19870101, end: 19940101
  3. PREMPRO [Suspect]
     Indication: HORMONE REPLACEMENT THERAPY
     Dates: start: 19940101, end: 20010101
  4. FEMHRT [Suspect]
     Indication: HORMONE REPLACEMENT THERAPY
     Dates: start: 20011101, end: 20020401
  5. ADVAIR DISKUS 100/50 [Concomitant]
  6. MONTELUKAST SODIUM [Concomitant]

REACTIONS (1)
  - BREAST CANCER FEMALE [None]
